FAERS Safety Report 10076340 (Version 1)
Quarter: 2014Q2

REPORT INFORMATION
  Report Type: Spontaneous
  Country: US (occurrence: None)
  Receive Date: 20140410
  Receipt Date: 20140410
  Transmission Date: 20141212
  Serious: Yes (Hospitalization, Other)
  Sender: FDA-Public Use
  Company Number: UTC-046710

PATIENT
  Age: 64 Year
  Sex: Female
  Weight: 84.8 kg

DRUGS (4)
  1. REMODULIN [Suspect]
     Indication: PULMONARY ARTERIAL HYPERTENSION
     Dosage: 0.05 UG/KG, 1 IN 1 MIN
     Route: 058
     Dates: start: 20120203
  2. COUMADIN [Concomitant]
  3. REVATIO [Concomitant]
  4. LETAIRIS [Concomitant]

REACTIONS (3)
  - Thermal burn [None]
  - Burns second degree [None]
  - Burns third degree [None]
